FAERS Safety Report 4943292-2 (Version None)
Quarter: 2006Q1

REPORT INFORMATION
  Report Type: 
  Country: None (occurrence: None)
  Receive Date: 20060314
  Receipt Date: 20050104
  Transmission Date: 20060701
  Serious: Yes (Hospitalization, Disabling)
  Sender: FDA-Public Use
  Company Number: US-ROCHE-391660

PATIENT
  Sex: Male

DRUGS (1)
  1. LARIAM [Suspect]
     Indication: MALARIA PROPHYLAXIS
     Route: 065
     Dates: start: 19950515, end: 19960615

REACTIONS (10)
  - AMNESIA [None]
  - FEELING GUILTY [None]
  - GENERALISED ANXIETY DISORDER [None]
  - MAJOR DEPRESSION [None]
  - MEMORY IMPAIRMENT [None]
  - MENTAL DISORDER [None]
  - MOOD SWINGS [None]
  - PANIC ATTACK [None]
  - SELF ESTEEM DECREASED [None]
  - SUICIDAL IDEATION [None]
